FAERS Safety Report 25879308 (Version 2)
Quarter: 2025Q4

REPORT INFORMATION
  Report Type: Report from Study
  Country: US (occurrence: US)
  Receive Date: 20251003
  Receipt Date: 20251228
  Transmission Date: 20260117
  Serious: Yes (Other)
  Sender: ABBVIE
  Company Number: US-ABBVIE-6482712

PATIENT
  Age: 80 Year
  Sex: Male

DRUGS (2)
  1. SKYRIZI [Suspect]
     Active Substance: RISANKIZUMAB-RZAA
     Indication: Psoriasis
     Route: 058
     Dates: start: 20220510
  2. SKYRIZI [Suspect]
     Active Substance: RISANKIZUMAB-RZAA
     Route: 058

REACTIONS (10)
  - Cervical vertebral fracture [Recovering/Resolving]
  - Rash papular [Not Recovered/Not Resolved]
  - Fall [Recovering/Resolving]
  - Device loosening [Recovering/Resolving]
  - Dry skin [Recovered/Resolved]
  - Musculoskeletal disorder [Unknown]
  - Dizziness [Unknown]
  - Rash macular [Unknown]
  - Myasthenia gravis [Not Recovered/Not Resolved]
  - Muscle atrophy [Unknown]

NARRATIVE: CASE EVENT DATE: 20230101
